APPROVED DRUG PRODUCT: PEMETREXED DISODIUM
Active Ingredient: PEMETREXED DISODIUM
Strength: EQ 100MG BASE/4ML (EQ 25MG BASE/ML)
Dosage Form/Route: SOLUTION;INTRAVENOUS
Application: N214218 | Product #001
Applicant: HOSPIRA INC
Approved: Jun 22, 2022 | RLD: Yes | RS: Yes | Type: RX